FAERS Safety Report 25034343 (Version 1)
Quarter: 2025Q1

REPORT INFORMATION
  Report Type: Spontaneous
  Country: US (occurrence: US)
  Receive Date: 20250304
  Receipt Date: 20250304
  Transmission Date: 20250409
  Serious: Yes (Death, Other)
  Sender: AMGEN
  Company Number: US-AMGEN-USASP2025039852

PATIENT

DRUGS (5)
  1. PEGFILGRASTIM [Suspect]
     Active Substance: PEGFILGRASTIM
     Indication: Prophylaxis
     Route: 065
  2. PREDNISONE [Suspect]
     Active Substance: PREDNISONE
     Indication: Acute lymphocytic leukaemia
     Route: 048
  3. BLINATUMOMAB [Suspect]
     Active Substance: BLINATUMOMAB
     Indication: Acute lymphocytic leukaemia
     Route: 065
  4. RITUXIMAB [Suspect]
     Active Substance: RITUXIMAB
     Indication: Acute lymphocytic leukaemia
     Route: 040
  5. VENETOCLAX [Suspect]
     Active Substance: VENETOCLAX
     Indication: Acute lymphocytic leukaemia
     Route: 048

REACTIONS (17)
  - Transplantation complication [Fatal]
  - Death [Fatal]
  - Acute lymphocytic leukaemia recurrent [Fatal]
  - Neutropenia [Unknown]
  - Sepsis [Unknown]
  - Febrile neutropenia [Unknown]
  - Bacteraemia [Unknown]
  - Pneumonia [Unknown]
  - Urinary tract infection [Unknown]
  - Pneumonia [Unknown]
  - Diarrhoea [Unknown]
  - Colitis [Unknown]
  - Infection [Unknown]
  - Hyperglycaemia [Unknown]
  - Hypocalcaemia [Unknown]
  - Hypotension [Unknown]
  - Thrombocytopenia [Unknown]
